FAERS Safety Report 23752198 (Version 1)
Quarter: 2024Q2

REPORT INFORMATION
  Report Type: Spontaneous
  Country: MX (occurrence: MX)
  Receive Date: 20240417
  Receipt Date: 20240417
  Transmission Date: 20240715
  Serious: Yes (Life-Threatening, Hospitalization, Other)
  Sender: FDA-Public Use
  Company Number: MX-AstraZeneca-CH-00603564A

PATIENT
  Sex: Female
  Weight: 28 kg

DRUGS (1)
  1. KANUMA [Suspect]
     Active Substance: SEBELIPASE ALFA
     Indication: Lysosomal acid lipase deficiency
     Dosage: 60 MILLIGRAM, Q2W
     Route: 042

REACTIONS (3)
  - Pneumonia [Not Recovered/Not Resolved]
  - Vascular device infection [Unknown]
  - Bacterial infection [Unknown]

NARRATIVE: CASE EVENT DATE: 20240407
